FAERS Safety Report 22629582 (Version 3)
Quarter: 2024Q2

REPORT INFORMATION
  Report Type: Spontaneous
  Country: IN (occurrence: IN)
  Receive Date: 20230622
  Receipt Date: 20240412
  Transmission Date: 20240716
  Serious: Yes (Other)
  Sender: FDA-Public Use
  Company Number: IN-PFIZER INC-PV202300108805

PATIENT
  Age: 53 Year
  Sex: Female
  Weight: 94.9 kg

DRUGS (26)
  1. PALBOCICLIB [Suspect]
     Active Substance: PALBOCICLIB
     Indication: Breast cancer metastatic
     Dosage: 125 MG, 1X/DAY
     Route: 048
     Dates: start: 20230117
  2. PALBOCICLIB [Suspect]
     Active Substance: PALBOCICLIB
     Dosage: 125 MG, 1X/DAY
     Route: 048
     Dates: start: 20230214
  3. PALBOCICLIB [Suspect]
     Active Substance: PALBOCICLIB
     Dosage: 125 MG, 1X/DAY
     Route: 048
     Dates: start: 20230317
  4. PALBOCICLIB [Suspect]
     Active Substance: PALBOCICLIB
     Dosage: 125 MG, 1X/DAY
     Route: 048
     Dates: start: 20230420
  5. PALBOCICLIB [Suspect]
     Active Substance: PALBOCICLIB
     Dosage: 125 MG, 1X/DAY
     Route: 048
     Dates: start: 20230520
  6. LETROZOLE [Concomitant]
     Active Substance: LETROZOLE
     Indication: Breast cancer metastatic
     Dosage: 2.5 MG, 1X/DAY
     Dates: start: 20230117
  7. LETROZOLE [Concomitant]
     Active Substance: LETROZOLE
     Dosage: 2.5 MG, 1X/DAY
     Dates: start: 20230214
  8. LETROZOLE [Concomitant]
     Active Substance: LETROZOLE
     Dosage: 2.5 MG, 1X/DAY
     Dates: start: 20230317
  9. LETROZOLE [Concomitant]
     Active Substance: LETROZOLE
     Dosage: 2.5 MG, 1X/DAY
     Dates: start: 20230420
  10. LETROZOLE [Concomitant]
     Active Substance: LETROZOLE
     Dosage: 2.5 MG, 1X/DAY
     Dates: start: 20230520
  11. LETROZOLE [Concomitant]
     Active Substance: LETROZOLE
     Dosage: 2.5 MG, 1X/DAY
  12. CISPLATIN [Concomitant]
     Active Substance: CISPLATIN
     Dosage: UNK
     Dates: start: 20230214
  13. CISPLATIN [Concomitant]
     Active Substance: CISPLATIN
     Dosage: UNK
     Dates: start: 20230317
  14. CISPLATIN [Concomitant]
     Active Substance: CISPLATIN
     Dosage: UNK
     Dates: start: 20230420
  15. CISPLATIN [Concomitant]
     Active Substance: CISPLATIN
     Dosage: UNK
     Dates: start: 20230520
  16. DENOSUMAB [Concomitant]
     Active Substance: DENOSUMAB
     Dosage: 120 MG
     Dates: start: 20230117
  17. DENOSUMAB [Concomitant]
     Active Substance: DENOSUMAB
     Dosage: 120 MG
     Dates: start: 20230214
  18. DENOSUMAB [Concomitant]
     Active Substance: DENOSUMAB
     Dosage: 120 MG
     Dates: start: 20230317
  19. DENOSUMAB [Concomitant]
     Active Substance: DENOSUMAB
     Dosage: 120 MG
     Dates: start: 20230420
  20. DENOSUMAB [Concomitant]
     Active Substance: DENOSUMAB
     Dosage: 120 MG
     Dates: start: 20230520
  21. METOPROLOL SUCCINATE [Concomitant]
     Active Substance: METOPROLOL SUCCINATE
     Dosage: AM 50/5 1-0-0 ONCE DAILY
  22. JANUMET [Concomitant]
     Active Substance: METFORMIN HYDROCHLORIDE\SITAGLIPTIN PHOSPHATE
     Dosage: 50/500 0-0-1 ONCE DAILY
  23. ATORVASTATIN CALCIUM [Concomitant]
     Active Substance: ATORVASTATIN CALCIUM
     Dosage: 10 NG, 1X/DAY
  24. MUCOBENZ [Concomitant]
     Dosage: UNK, 3X/DAY
  25. REPACE [Concomitant]
     Dosage: 50 MG, 1X/DAY
  26. LIVOGEN [CYANOCOBALAMIN;FERRIC AMMONIUM CITRATE;GLYCYRRHIZA GLABRA LIQ [Concomitant]
     Dosage: UNK, 1X/DAY

REACTIONS (7)
  - Blood pressure increased [Unknown]
  - Neutrophil count decreased [Unknown]
  - Fatigue [Unknown]
  - Red blood cell count decreased [Unknown]
  - Haemoglobin decreased [Unknown]
  - White blood cell count decreased [Unknown]
  - Neoplasm progression [Unknown]
